FAERS Safety Report 7517041-8 (Version None)
Quarter: 2011Q2

REPORT INFORMATION
  Report Type: 
  Country: None (occurrence: None)
  Receive Date: 20110601
  Receipt Date: 20110518
  Transmission Date: 20111010
  Serious: Yes (Other)
  Sender: FDA-Public Use
  Company Number: CA-JNJFOC-20110509215

PATIENT
  Sex: Male
  Weight: 86.9 kg

DRUGS (2)
  1. REMICADE [Suspect]
     Indication: CROHN'S DISEASE
     Route: 042
     Dates: start: 20051101
  2. REMICADE [Suspect]
     Route: 042
     Dates: start: 20110405

REACTIONS (1)
  - RECTAL HAEMORRHAGE [None]
